FAERS Safety Report 9667043 (Version 1)
Quarter: 2013Q4

REPORT INFORMATION
  Report Type: Spontaneous
  Country: US (occurrence: None)
  Receive Date: 20131101
  Receipt Date: 20131101
  Transmission Date: 20140711
  Serious: Yes (Hospitalization)
  Sender: FDA-Public Use
  Company Number: None

PATIENT
  Age: 74 Year
  Sex: Male
  Weight: 70.4 kg

DRUGS (9)
  1. TRAMETINIB [Suspect]
     Indication: OROPHARYNGEAL SQUAMOUS CELL CARCINOMA
     Dosage: 2 MG PO QD X 14 DAYS
     Dates: start: 20130826, end: 20130902
  2. AMLODIPINE [Concomitant]
  3. IRON SUPPLEMENT [Concomitant]
  4. TRIAMCINOLONE OINTMENT [Concomitant]
  5. RANITIDINE [Concomitant]
  6. SODIUM BICARBONATE [Concomitant]
  7. NORCO TABS [Concomitant]
  8. PERCOCET [Concomitant]
  9. ONDANSETRON [Concomitant]

REACTIONS (9)
  - Peritonitis [None]
  - Duodenal ulcer perforation [None]
  - Colitis [None]
  - Hypotension [None]
  - Hypoxia [None]
  - Tachycardia [None]
  - Clostridium test positive [None]
  - Blood creatinine increased [None]
  - Helicobacter test positive [None]
